FAERS Safety Report 8130315-5 (Version None)
Quarter: 2012Q1

REPORT INFORMATION
  Report Type: 
  Country: None (occurrence: None)
  Receive Date: 20120210
  Receipt Date: 20120206
  Transmission Date: 20120608
  Serious: Yes (Death, Hospitalization, Other)
  Sender: FDA-Public Use
  Company Number: PHHY2012BR009982

PATIENT
  Sex: Male

DRUGS (3)
  1. PROLOPA [Concomitant]
     Indication: PARKINSON'S DISEASE
     Dosage: 1 DF, EVERY FOUR HOURS
     Route: 048
  2. EXELON [Suspect]
     Indication: DEMENTIA ALZHEIMER'S TYPE
     Dosage: 4.6 MG\24H
     Route: 062
  3. EXELON [Suspect]
     Indication: DEMENTIA ALZHEIMER'S TYPE
     Dosage: 3 MG, UNK
     Route: 048
     Dates: start: 20080101

REACTIONS (8)
  - CHROMATURIA [None]
  - BACTERIAL INFECTION [None]
  - PYREXIA [None]
  - URINE ODOUR ABNORMAL [None]
  - URINARY TRACT INFECTION [None]
  - IMMUNODEFICIENCY [None]
  - CEREBROVASCULAR ACCIDENT [None]
  - HAEMATEMESIS [None]
